FAERS Safety Report 7060411-5 (Version None)
Quarter: 2010Q4

REPORT INFORMATION
  Report Type: 
  Country: None (occurrence: None)
  Receive Date: 20101025
  Receipt Date: 20101019
  Transmission Date: 20110411
  Serious: Yes (Hospitalization)
  Sender: FDA-Public Use
  Company Number: FR-WYE-G06827110

PATIENT
  Sex: Female

DRUGS (2)
  1. TRIPHASIL-21 [Suspect]
     Indication: CONTRACEPTION
     Route: 048
     Dates: start: 20090901
  2. RHINADVIL [Suspect]
     Indication: SINUSITIS
     Route: 048
     Dates: start: 20100101, end: 20100101

REACTIONS (1)
  - PANCREATITIS ACUTE [None]
